FAERS Safety Report 4427942-5 (Version None)
Quarter: 2004Q3

REPORT INFORMATION
  Report Type: 
  Country: None (occurrence: None)
  Receive Date: 20040726
  Receipt Date: 20040319
  Transmission Date: 20050211
  Serious: No
  Sender: FDA-Public Use
  Company Number: USA040362603

PATIENT
  Age: 69 Year
  Sex: Female
  Weight: 65 kg

DRUGS (7)
  1. FORTEO [Suspect]
     Indication: OSTEOPOROSIS
     Dates: start: 20031230
  2. DIAVAN [Concomitant]
  3. LOZOL [Concomitant]
  4. TRICOR [Concomitant]
  5. TRAZADONE (TRAZODONE) [Concomitant]
  6. PROTONIX [Concomitant]
  7. PERCOCET [Concomitant]

REACTIONS (1)
  - ALOPECIA [None]
